FAERS Safety Report 6311951-5 (Version None)
Quarter: 2009Q3

REPORT INFORMATION
  Report Type: 
  Country: None (occurrence: None)
  Receive Date: 20090817
  Receipt Date: 20080708
  Transmission Date: 20100115
  Serious: Yes (Other)
  Sender: FDA-Public Use
  Company Number: US-BRISTOL-MYERS SQUIBB COMPANY-14255343

PATIENT
  Sex: Female

DRUGS (7)
  1. ESTRACE [Suspect]
     Dosage: APPROXIMATELY 1998 THROUGH OCT03
     Dates: start: 19980101
  2. ESTRADIOL [Suspect]
     Dosage: APPROXIMATELY 1998 THROUGH OCT03
     Dates: start: 19980101
  3. CENESTIN [Suspect]
     Dosage: APPROXIMATELY 1998 THROUGH OCT03
     Dates: start: 19980101
  4. MEDROXYPROGESTERONE ACETATE [Suspect]
     Dosage: APPROXIMATELY 1998 THROUGH OCT03
     Dates: start: 19980101
  5. PREMPRO [Suspect]
     Dosage: APPROXIMATELY 1998 THROUGH OCT03
     Dates: start: 19980101
  6. PROVERA [Suspect]
     Dosage: APPROXIMATELY 1998 THROUGH OCT03
     Dates: start: 19980101
  7. PREMARIN [Suspect]
     Dosage: APPROXIMATELY 1998 THROUGH OCT03
     Dates: start: 19980101

REACTIONS (1)
  - BREAST CANCER [None]
